FAERS Safety Report 9921426 (Version 2)
Quarter: 2014Q1

REPORT INFORMATION
  Report Type: Spontaneous
  Country: DE (occurrence: DE)
  Receive Date: 20140225
  Receipt Date: 20140225
  Transmission Date: 20141002
  Serious: Yes (Other)
  Sender: FDA-Public Use
  Company Number: DE-B.I. PHARMACEUTICALS,INC./RIDGEFIELD-2014-BI-04791BY

PATIENT
  Age: 69 Year
  Sex: Male
  Weight: 112 kg

DRUGS (3)
  1. KINZALKOMB [Suspect]
     Indication: ESSENTIAL HYPERTENSION
     Dosage: DAILY DOSE:1 DF
     Route: 065
  2. TELMISARTAN [Suspect]
     Indication: PRODUCT USED FOR UNKNOWN INDICATION
     Dosage: 80 MG
     Route: 065
  3. DUODART (DUTAS-T) CAPSULE [Concomitant]
     Indication: BENIGN PROSTATIC HYPERPLASIA
     Route: 065

REACTIONS (3)
  - Atrial fibrillation [Unknown]
  - Polyuria [Unknown]
  - Hypokalaemia [Unknown]
